FAERS Safety Report 20630566 (Version 1)
Quarter: 2022Q1

REPORT INFORMATION
  Report Type: Report from Study
  Country: US (occurrence: US)
  Receive Date: 20220324
  Receipt Date: 20220324
  Transmission Date: 20220423
  Serious: Yes (Hospitalization)
  Sender: FDA-Public Use
  Company Number: US-EXELIXIS-CABO-21047245

PATIENT
  Age: 57 Year
  Sex: Male

DRUGS (2)
  1. CABOMETYX [Suspect]
     Active Substance: CABOZANTINIB S-MALATE
     Indication: Renal cancer
     Dosage: 40 MG, QD
     Route: 048
     Dates: start: 20211116
  2. CABOMETYX [Suspect]
     Active Substance: CABOZANTINIB S-MALATE
     Dosage: 20 MG
     Route: 048

REACTIONS (6)
  - Gastrooesophageal reflux disease [Unknown]
  - Paraesthesia [Unknown]
  - Dehydration [Unknown]
  - Diarrhoea [Unknown]
  - Abdominal pain upper [Unknown]
  - Rash [Unknown]

NARRATIVE: CASE EVENT DATE: 20220311
